FAERS Safety Report 16988258 (Version 1)
Quarter: 2019Q4

REPORT INFORMATION
  Report Type: Spontaneous
  Country: US (occurrence: US)
  Receive Date: 20190919
  Receipt Date: 20190919
  Transmission Date: 20200122
  Serious: No
  Sender: FDA-Public Use
  Company Number: None

PATIENT
  Age: 46 Year
  Sex: Male

DRUGS (1)
  1. TECFIDERA [Suspect]
     Active Substance: DIMETHYL FUMARATE
     Indication: MULTIPLE SCLEROSIS
     Dosage: ?          OTHER ROUTE:GASTRIC TUBE?
     Dates: start: 20190611

REACTIONS (6)
  - Incontinence [None]
  - Vomiting [None]
  - Hypophagia [None]
  - Urticaria [None]
  - Blister [None]
  - Hostility [None]

NARRATIVE: CASE EVENT DATE: 20190612
